FAERS Safety Report 25228545 (Version 1)
Quarter: 2025Q2

REPORT INFORMATION
  Report Type: Spontaneous
  Country: CH (occurrence: CH)
  Receive Date: 20250423
  Receipt Date: 20250423
  Transmission Date: 20250716
  Serious: Yes (Other)
  Sender: ROCHE
  Company Number: CH-ROCHE-10000261461

PATIENT
  Sex: Female

DRUGS (1)
  1. IBANDRONIC ACID [Suspect]
     Active Substance: IBANDRONIC ACID
     Indication: Osteoporosis
     Dosage: EVERY THREE MONTHS FOR TWO YEARS
     Route: 050

REACTIONS (2)
  - Osteoarthritis [Unknown]
  - Arthralgia [Unknown]
